FAERS Safety Report 9503217 (Version 2)
Quarter: 2013Q3

REPORT INFORMATION
  Report Type: Spontaneous
  Country: US (occurrence: US)
  Receive Date: 20130906
  Receipt Date: 20130919
  Transmission Date: 20140515
  Serious: No
  Sender: FDA-Public Use
  Company Number: US-PFIZER INC-2013255038

PATIENT
  Sex: Male

DRUGS (1)
  1. ADVIL [Suspect]
     Indication: PAIN
     Dosage: 200 MG, UNK
     Route: 048

REACTIONS (4)
  - Rash [Unknown]
  - Lip swelling [Unknown]
  - Swelling face [Unknown]
  - Pruritus [Unknown]
